FAERS Safety Report 8048632-6 (Version None)
Quarter: 2012Q1

REPORT INFORMATION
  Report Type: 
  Country: None (occurrence: None)
  Receive Date: 20120117
  Receipt Date: 20120111
  Transmission Date: 20120608
  Serious: Yes (Life-Threatening, Other)
  Sender: FDA-Public Use
  Company Number: US-BAYER-2011-097605

PATIENT
  Age: 27 Year
  Sex: Female
  Weight: 54 kg

DRUGS (2)
  1. YAZ [Suspect]
     Indication: CONTRACEPTION
     Dosage: UNK
     Route: 048
     Dates: start: 20060805, end: 20081101
  2. VITAMIN C [Concomitant]
     Dosage: UNK
     Route: 048
     Dates: start: 20010101

REACTIONS (9)
  - GALLBLADDER DISORDER [None]
  - HEPATIC LESION [None]
  - CHOLECYSTITIS CHRONIC [None]
  - BILIARY DYSKINESIA [None]
  - HEPATIC NEOPLASM [None]
  - ANXIETY [None]
  - INJURY [None]
  - ANHEDONIA [None]
  - ABDOMINAL PAIN [None]
